FAERS Safety Report 9028535 (Version 3)
Quarter: 2013Q2

REPORT INFORMATION
  Report Type: Report from Study
  Country: FR (occurrence: FR)
  Receive Date: 20130124
  Receipt Date: 20130522
  Transmission Date: 20140414
  Serious: Yes (Hospitalization)
  Sender: FDA-Public Use
  Company Number: FR-SANOFI-AVENTIS-2013SA004422

PATIENT
  Age: 67 Year
  Sex: Male
  Weight: 87 kg

DRUGS (8)
  1. CABAZITAXEL [Suspect]
     Indication: PROSTATE CANCER METASTATIC
     Route: 042
     Dates: start: 20121004, end: 20121004
  2. CABAZITAXEL [Suspect]
     Indication: PROSTATE CANCER METASTATIC
     Route: 042
     Dates: start: 20121227, end: 20121227
  3. PREDNISONE [Suspect]
     Indication: PROSTATE CANCER METASTATIC
     Route: 048
     Dates: start: 20121004, end: 20130107
  4. PAROXETINE [Concomitant]
     Route: 048
     Dates: start: 1980
  5. FENOFIBRATE [Concomitant]
     Route: 048
     Dates: start: 1992
  6. METFORMIN [Concomitant]
     Route: 048
     Dates: start: 201112
  7. NEBIVOLOL [Concomitant]
     Route: 048
     Dates: start: 2011
  8. DEPAMIDE [Concomitant]
     Route: 048
     Dates: start: 1980

REACTIONS (1)
  - Hip fracture [Recovered/Resolved]
